FAERS Safety Report 6600818-0 (Version None)
Quarter: 2010Q1

REPORT INFORMATION
  Report Type: 
  Country: None (occurrence: None)
  Receive Date: 20100223
  Receipt Date: 20100223
  Transmission Date: 20100710
  Serious: No
  Sender: FDA-Public Use
  Company Number: None

PATIENT
  Age: 46 Year
  Sex: Female
  Weight: 63.5036 kg

DRUGS (1)
  1. TAMOXIFEN CITRATE [Suspect]
     Indication: BLOOD OESTROGEN INCREASED
     Dosage: 20MG 1X DAY PO
     Route: 048
     Dates: start: 20080815, end: 20100201

REACTIONS (1)
  - ARTHRITIS [None]
